FAERS Safety Report 8576776-9 (Version None)
Quarter: 2012Q3

REPORT INFORMATION
  Report Type: 
  Country: None (occurrence: None)
  Receive Date: 20120807
  Receipt Date: 20120723
  Transmission Date: 20120928
  Serious: Yes (Hospitalization, Other)
  Sender: FDA-Public Use
  Company Number: FR-WATSON-2012-13383

PATIENT
  Age: 65 Year
  Sex: Female

DRUGS (2)
  1. DIAZEPAM [Suspect]
     Indication: ALCOHOLISM
     Dosage: 10 MG, DAILY
     Route: 065
  2. DIAZEPAM [Suspect]
     Dosage: 40 MG, DAILY
     Route: 065

REACTIONS (4)
  - CATATONIA [None]
  - DRUG WITHDRAWAL MAINTENANCE THERAPY [None]
  - PANIC ATTACK [None]
  - ANXIETY [None]
